FAERS Safety Report 7118351-9 (Version None)
Quarter: 2010Q4

REPORT INFORMATION
  Report Type: 
  Country: None (occurrence: None)
  Receive Date: 20101123
  Receipt Date: 20101119
  Transmission Date: 20110411
  Serious: Yes (Death)
  Sender: FDA-Public Use
  Company Number: PHHY2010JP75018

PATIENT
  Age: 44 Year
  Sex: Female

DRUGS (5)
  1. PARLODEL [Suspect]
     Indication: NEUROLEPTIC MALIGNANT SYNDROME
     Dosage: UNK
     Route: 048
     Dates: start: 20090412
  2. AMOXAPINE [Suspect]
     Indication: DEPRESSION
     Dosage: 1600 MG, UNK
     Route: 048
  3. ALCOHOL [Suspect]
  4. DANTRIUM [Concomitant]
     Indication: NEUROLEPTIC MALIGNANT SYNDROME
  5. PROPOFOL [Concomitant]
     Indication: NEUROLEPTIC MALIGNANT SYNDROME

REACTIONS (6)
  - ACUTE HEPATIC FAILURE [None]
  - BRAIN OEDEMA [None]
  - DISSEMINATED INTRAVASCULAR COAGULATION [None]
  - HEPATIC NECROSIS [None]
  - RENAL FAILURE ACUTE [None]
  - RENAL TUBULAR NECROSIS [None]
